FAERS Safety Report 21496767 (Version 1)
Quarter: 2022Q4

REPORT INFORMATION
  Report Type: Spontaneous
  Country: FR (occurrence: FR)
  Receive Date: 20221022
  Receipt Date: 20221022
  Transmission Date: 20230112
  Serious: Yes (Hospitalization)
  Sender: FDA-Public Use
  Company Number: None

PATIENT
  Age: 72 Year
  Sex: Male
  Weight: 115 kg

DRUGS (10)
  1. AMIODARONE [Suspect]
     Active Substance: AMIODARONE
     Indication: Product used for unknown indication
     Dosage: UNIT DOSE : 200 MG   , FREQUENCY TIME : 1 DAY
     Dates: start: 202104, end: 202104
  2. ALDACTONE [Suspect]
     Active Substance: SPIRONOLACTONE
     Indication: Product used for unknown indication
     Dosage: FORM STRENGTH : 50 MG , UNIT DOSE :  50 MG , FREQUENCY TIME :  1 DAY
     Dates: start: 202104, end: 202104
  3. BISOPROLOL [Concomitant]
     Active Substance: BISOPROLOL
     Indication: Product used for unknown indication
     Dosage: FORM STRENGTH : 2.5 MG
  4. FUROSEMIDE [Concomitant]
     Active Substance: FUROSEMIDE
     Indication: Product used for unknown indication
  5. XARELTO [Concomitant]
     Active Substance: RIVAROXABAN
     Indication: Product used for unknown indication
     Dosage: FORM STRENGTH : 20 MG
  6. ZOLPIDEM TARTRATE [Concomitant]
     Active Substance: ZOLPIDEM TARTRATE
     Indication: Product used for unknown indication
     Dosage: FORM STRENGTH : 10 MG
  7. ALLOPURINOL [Concomitant]
     Active Substance: ALLOPURINOL
     Indication: Product used for unknown indication
  8. LEVOTHYROXINE SODIUM [Concomitant]
     Active Substance: LEVOTHYROXINE SODIUM
     Indication: Product used for unknown indication
     Dosage: LEVOTHYROXINE SODIQUE
  9. VALACYCLOVIR HYDROCHLORIDE [Concomitant]
     Active Substance: VALACYCLOVIR HYDROCHLORIDE
     Indication: Product used for unknown indication
  10. TRANSIPEG [Concomitant]
     Indication: Product used for unknown indication
     Dosage: POWDER FOR ORAL SOLUTION IN SACHET , FORM STRENGTH : 5.9 GRAM

REACTIONS (2)
  - Acute kidney injury [Recovered/Resolved]
  - Rash maculo-papular [Recovered/Resolved]

NARRATIVE: CASE EVENT DATE: 20210419
